FAERS Safety Report 17768472 (Version 6)
Quarter: 2020Q3

REPORT INFORMATION
  Report Type: Spontaneous
  Country: PL (occurrence: PL)
  Receive Date: 20200512
  Receipt Date: 20200709
  Transmission Date: 20201102
  Serious: Yes (Life-Threatening, Hospitalization, Other)
  Sender: FDA-Public Use
  Company Number: PL-AUROBINDO-AUR-APL-2020-024253

PATIENT
  Age: 51 Year
  Sex: Female
  Weight: 65 kg

DRUGS (23)
  1. GABAPENTIN. [Suspect]
     Active Substance: GABAPENTIN
     Indication: EXTRAPYRAMIDAL DISORDER
     Dosage: 800 MILLIGRAM, ONCE A DAY
     Route: 065
  2. LAMOTRIGINE TABLET [Suspect]
     Active Substance: LAMOTRIGINE
     Indication: DEPRESSION
     Dosage: 200 MILLIGRAM, ONCE A DAY
     Route: 048
     Dates: start: 2017
  3. LAMOTRIGINE TABLET [Suspect]
     Active Substance: LAMOTRIGINE
     Indication: BIPOLAR DISORDER
     Dosage: 25 MILLIGRAM, ONCE A DAY
     Route: 048
     Dates: start: 2017
  4. VENLAFAXINE [Concomitant]
     Active Substance: VENLAFAXINE HYDROCHLORIDE
     Indication: PRODUCT USED FOR UNKNOWN INDICATION
     Dosage: UNK
     Route: 065
  5. ARIPIPRAZOLE  TABLETS [Suspect]
     Active Substance: ARIPIPRAZOLE
     Indication: BIPOLAR DISORDER
     Dosage: 30 MG/D OVER 2 WEEKS
     Route: 065
     Dates: start: 2017
  6. BIPERIDEN [Suspect]
     Active Substance: BIPERIDEN
     Indication: MUSCULOSKELETAL STIFFNESS
     Dosage: 4 MILLIGRAM, ONCE A DAY
     Route: 065
  7. FLUOXETINE [Suspect]
     Active Substance: FLUOXETINE HYDROCHLORIDE
     Indication: PRODUCT USED FOR UNKNOWN INDICATION
     Dosage: 60 MILLIGRAM, ONCE A DAY
     Route: 065
  8. QUETIAPINE FILM COATED TABLETS [Suspect]
     Active Substance: QUETIAPINE
     Dosage: 400 MG/D, WHICH TOOK 9 DAYS
     Route: 065
     Dates: start: 2017
  9. PERAZINE [Suspect]
     Active Substance: PERAZINE
     Indication: DEPRESSION
     Dosage: 150 MILLIGRAM, ONCE A DAY
     Route: 065
  10. LEVOTHYROXINE. [Concomitant]
     Active Substance: LEVOTHYROXINE
     Indication: PRODUCT USED FOR UNKNOWN INDICATION
     Dosage: UNK
     Route: 065
     Dates: start: 2015
  11. ARIPIPRAZOLE  TABLETS [Suspect]
     Active Substance: ARIPIPRAZOLE
     Indication: DELUSION
     Dosage: 7.5 MILLIGRAM, ONCE A DAY
     Route: 048
     Dates: start: 2017
  12. ARIPIPRAZOLE  TABLETS [Suspect]
     Active Substance: ARIPIPRAZOLE
     Indication: DEPRESSION
     Dosage: 30 MILLIGRAM, ONCE A DAY
     Route: 048
     Dates: start: 2017
  13. LAMOTRIGINE TABLET [Suspect]
     Active Substance: LAMOTRIGINE
     Dosage: UNK
     Route: 048
     Dates: start: 2017
  14. QUETIAPINE FILM COATED TABLETS [Suspect]
     Active Substance: QUETIAPINE
     Indication: BIPOLAR DISORDER
     Dosage: 400 MILLIGRAM, ONCE A DAY
     Route: 048
     Dates: start: 2017
  15. LITHIUM. [Suspect]
     Active Substance: LITHIUM
     Indication: DEPRESSION
     Dosage: MAXIMUM 1000 MG
     Route: 065
  16. SULFAMETHOXAZOLE;TRIMETHOPRIM [Concomitant]
     Active Substance: SULFAMETHOXAZOLE\TRIMETHOPRIM
     Indication: URINARY TRACT INFECTION
     Dosage: UNK
     Route: 065
  17. LITHIUM. [Suspect]
     Active Substance: LITHIUM
     Indication: MOOD SWINGS
  18. QUETIAPINE FILM COATED TABLETS [Suspect]
     Active Substance: QUETIAPINE
     Indication: MOOD SWINGS
     Dosage: 50 MILLIGRAM, ONCE A DAY
     Route: 048
     Dates: start: 2017
  19. QUETIAPINE FILM COATED TABLETS [Suspect]
     Active Substance: QUETIAPINE
     Indication: DEPRESSION
     Dosage: 400 MILLIGRAM, ONCE A DAY
     Route: 048
     Dates: start: 2017
  20. CEFTRIAXONE. [Concomitant]
     Active Substance: CEFTRIAXONE
     Indication: URINARY TRACT INFECTION
     Dosage: 2 GRAM, ONCE A DAY
     Route: 065
  21. LAMOTRIGINE TABLET [Suspect]
     Active Substance: LAMOTRIGINE
     Indication: MOOD SWINGS
     Dosage: 50 MILLIGRAM, ONCE A DAY
     Route: 048
     Dates: start: 2017
  22. OLANZAPINE. [Suspect]
     Active Substance: OLANZAPINE
     Indication: PSYCHOTIC SYMPTOM
     Dosage: 5 MILLIGRAM, ONCE A DAY
     Route: 065
  23. CARBAMAZEPINE. [Suspect]
     Active Substance: CARBAMAZEPINE
     Indication: DEPRESSION
     Dosage: 200 MG/D, MAX. TO 800 MG/D
     Route: 065

REACTIONS (19)
  - Ideas of reference [Unknown]
  - Mental impairment [Unknown]
  - Sleep disorder [Unknown]
  - Drug ineffective [Unknown]
  - Toxicity to various agents [Recovered/Resolved]
  - Cogwheel rigidity [Recovered/Resolved]
  - Agitation [Recovered/Resolved]
  - Persecutory delusion [Recovered/Resolved]
  - Depressed mood [Unknown]
  - Tremor [Recovered/Resolved]
  - Pyrexia [Recovered/Resolved]
  - Product use in unapproved indication [Unknown]
  - Sopor [Recovered/Resolved]
  - Altered state of consciousness [Recovered/Resolved]
  - Anxiety [Unknown]
  - Condition aggravated [Unknown]
  - Therapeutic response decreased [Unknown]
  - Acute kidney injury [Recovered/Resolved]
  - Neuroleptic malignant syndrome [Recovered/Resolved]

NARRATIVE: CASE EVENT DATE: 2017
